FAERS Safety Report 9365205 (Version 2)
Quarter: 2013Q2

REPORT INFORMATION
  Report Type: Spontaneous
  Country: FR (occurrence: FR)
  Receive Date: 20130624
  Receipt Date: 20130624
  Transmission Date: 20140414
  Serious: Yes (Other)
  Sender: FDA-Public Use
  Company Number: FR-PR/991117/140

PATIENT
  Sex: Female

DRUGS (2)
  1. SUBUTEX [Suspect]
     Indication: DRUG DEPENDENCE
     Route: 065
  2. SOLUPRED (PREDNISOLONE) [Suspect]
     Indication: HEPATITIS C
     Dosage: UNKNOWN DOSING DETAILS
     Route: 065

REACTIONS (2)
  - Polyhydramnios [Recovered/Resolved]
  - Exposure during pregnancy [Recovered/Resolved]
